FAERS Safety Report 8429920-8 (Version None)
Quarter: 2012Q2

REPORT INFORMATION
  Report Type: 
  Country: None (occurrence: None)
  Receive Date: 20120524
  Receipt Date: 20120516
  Transmission Date: 20120825
  Serious: Yes (Other)
  Sender: FDA-Public Use
  Company Number: 2011029217

PATIENT
  Age: 7 Year
  Sex: Male
  Weight: 22.2263 kg

DRUGS (20)
  1. HIZENTRA [Suspect]
  2. BACTRIM [Concomitant]
  3. DELSYM [Concomitant]
  4. DEXTROSE [Concomitant]
  5. PREVACID [Concomitant]
  6. LIDOCAINE /PRILOCAINE [Concomitant]
  7. HIZENTRA [Suspect]
  8. HIZENTRA [Suspect]
  9. HIZENTRA [Suspect]
  10. HIZENTRA [Suspect]
  11. HIZENTRA [Suspect]
  12. MIDODRINE HYDROCHLORIDE [Concomitant]
  13. HYDROXYZINE [Concomitant]
  14. HIZENTRA [Suspect]
     Indication: HYPOGAMMAGLOBULINAEMIA
     Dosage: SEE IMAGE, SUBCUTANEOUS
     Route: 058
     Dates: start: 20110215
  15. HIZENTRA [Suspect]
  16. SODIUM CHLORIDE [Concomitant]
  17. HIZENTRA [Suspect]
  18. SODIUM CHLORIDE 0.9% [Concomitant]
  19. BENZONATATE [Concomitant]
  20. PREDNISONE TAB [Concomitant]

REACTIONS (6)
  - RASH [None]
  - PYREXIA [None]
  - NAUSEA [None]
  - VOMITING [None]
  - HAEMATOCHEZIA [None]
  - HEADACHE [None]
